FAERS Safety Report 17901579 (Version 8)
Quarter: 2024Q4

REPORT INFORMATION
  Report Type: Report from Study
  Country: IE (occurrence: IE)
  Receive Date: 20200616
  Receipt Date: 20241012
  Transmission Date: 20250115
  Serious: Yes (Other)
  Sender: TAKEDA
  Company Number: IE-SHIRE-IE201936061

PATIENT
  Age: 54 Year
  Sex: Female

DRUGS (7)
  1. HUMAN IMMUNOGLOBULIN G\HYALURONIDASE RECOMBINANT HUMAN [Suspect]
     Active Substance: HUMAN IMMUNOGLOBULIN G\HYALURONIDASE (HUMAN RECOMBINANT)
     Indication: Chronic lymphocytic leukaemia
     Dosage: 15 MILLIGRAM, Q3WEEKS
     Route: 058
     Dates: start: 20190321
  2. HUMAN IMMUNOGLOBULIN G\HYALURONIDASE RECOMBINANT HUMAN [Suspect]
     Active Substance: HUMAN IMMUNOGLOBULIN G\HYALURONIDASE (HUMAN RECOMBINANT)
     Dosage: 15 GRAM, Q3WEEKS
     Route: 058
  3. HUMAN IMMUNOGLOBULIN G\HYALURONIDASE RECOMBINANT HUMAN [Suspect]
     Active Substance: HUMAN IMMUNOGLOBULIN G\HYALURONIDASE (HUMAN RECOMBINANT)
     Dosage: 20 GRAM, Q3WEEKS
     Route: 058
  4. IBRUTINIB [Suspect]
     Active Substance: IBRUTINIB
     Indication: Chronic lymphocytic leukaemia
     Dosage: 420 MILLIGRAM
     Route: 048
     Dates: start: 20190301
  5. ARCOXIA [Concomitant]
     Active Substance: ETORICOXIB
     Indication: Product used for unknown indication
     Dosage: 100 MILLIGRAM, QD
     Route: 050
  6. VALTREX [Concomitant]
     Active Substance: VALACYCLOVIR HYDROCHLORIDE
     Indication: Product used for unknown indication
     Dosage: 200 MILLIGRAM, BID
     Route: 050
  7. IMBRUVICA [Concomitant]
     Active Substance: IBRUTINIB
     Indication: Product used for unknown indication
     Dosage: 420 MILLIGRAM, QD
     Route: 050
     Dates: start: 20190301

REACTIONS (12)
  - Uveitis [Recovering/Resolving]
  - Optic neuritis [Recovering/Resolving]
  - Cystoid macular oedema [Recovered/Resolved]
  - Product use issue [Unknown]
  - Headache [Not Recovered/Not Resolved]
  - Onychoclasis [Not Recovered/Not Resolved]
  - Visual impairment [Recovering/Resolving]
  - Eye oedema [Recovering/Resolving]
  - Vitreous floaters [Recovering/Resolving]
  - Device infusion issue [Unknown]
  - Nausea [Not Recovered/Not Resolved]
  - Malaise [Unknown]

NARRATIVE: CASE EVENT DATE: 20190321
